FAERS Safety Report 4852183-7 (Version None)
Quarter: 2005Q4

REPORT INFORMATION
  Report Type: 
  Country: None (occurrence: None)
  Receive Date: 20051213
  Receipt Date: 20051129
  Transmission Date: 20060501
  Serious: Yes (Hospitalization, Other)
  Sender: FDA-Public Use
  Company Number: CA-GLAXOSMITHKLINE-A0584136A

PATIENT
  Age: 67 Year
  Sex: Male
  Weight: 90.9 kg

DRUGS (1)
  1. MALARONE [Suspect]
     Indication: MALARIA PROPHYLAXIS
     Dates: start: 20051001

REACTIONS (16)
  - ABDOMINAL TENDERNESS [None]
  - ASTHENIA [None]
  - BLOOD PRESSURE SYSTOLIC INCREASED [None]
  - CHILLS [None]
  - COUGH [None]
  - DEHYDRATION [None]
  - MALAISE [None]
  - NAUSEA [None]
  - OXYGEN SATURATION DECREASED [None]
  - PYREXIA [None]
  - RASH [None]
  - SOMNOLENCE [None]
  - SPLEEN PALPABLE [None]
  - TACHYCARDIA [None]
  - THROMBOCYTOPENIA [None]
  - VOMITING [None]
